FAERS Safety Report 4581342-6 (Version None)
Quarter: 2005Q1

REPORT INFORMATION
  Report Type: 
  Country: None (occurrence: None)
  Receive Date: 20050214
  Receipt Date: 20041001
  Transmission Date: 20050727
  Serious: No
  Sender: FDA-Public Use
  Company Number: US-GLAXOSMITHKLINE-A0528135A

PATIENT
  Sex: Female

DRUGS (4)
  1. LAMICTAL [Suspect]
     Indication: BIPOLAR DISORDER
     Dosage: 200MG PER DAY
     Route: 048
  2. CYMBALTA [Concomitant]
     Route: 048
  3. LEXAPRO [Concomitant]
  4. KLONOPIN [Concomitant]

REACTIONS (1)
  - METRORRHAGIA [None]
